FAERS Safety Report 7304185-9 (Version None)
Quarter: 2011Q1

REPORT INFORMATION
  Report Type: 
  Country: None (occurrence: None)
  Receive Date: 20110221
  Receipt Date: 20110201
  Transmission Date: 20110831
  Serious: Yes (Hospitalization, Other)
  Sender: FDA-Public Use
  Company Number: US-BAYER-201041878NA

PATIENT
  Sex: Female
  Weight: 57 kg

DRUGS (2)
  1. LOVENOX [Concomitant]
     Indication: DEEP VEIN THROMBOSIS
     Dosage: UNK
     Dates: start: 20071210
  2. YAZ [Suspect]
     Indication: CONTRACEPTION
     Dosage: UNK UNK, UNK
     Route: 048
     Dates: start: 20071001, end: 20071201

REACTIONS (5)
  - DEEP VEIN THROMBOSIS [None]
  - ABASIA [None]
  - OEDEMA PERIPHERAL [None]
  - MUSCLE STRAIN [None]
  - PAIN IN EXTREMITY [None]
